FAERS Safety Report 10609954 (Version 22)
Quarter: 2021Q1

REPORT INFORMATION
  Report Type: Spontaneous
  Country: US (occurrence: US)
  Receive Date: 20141126
  Receipt Date: 20210201
  Transmission Date: 20210419
  Serious: Yes (Hospitalization, Other)
  Sender: FDA-Public Use
  Company Number: US-PFIZER INC-2014323469

PATIENT
  Age: 69 Year
  Sex: Female
  Weight: 90.72 kg

DRUGS (17)
  1. FISH OIL [Concomitant]
     Active Substance: FISH OIL
     Dosage: 1000 MG, 1X/DAY
     Route: 048
  2. SENNOSIDES A+B [Concomitant]
     Active Substance: SENNOSIDES A AND B
     Indication: CONSTIPATION
     Dosage: 8.6 MG, DAILY (TAKE 2 TABLET BY ORAL ROUTE EVERY DAY AT BED TIME AS NEEDED FOR CONSTIPATION,)
     Route: 048
  3. NITROGLYCERIN. [Concomitant]
     Active Substance: NITROGLYCERIN
     Indication: CARDIAC DISORDER
     Dosage: UNK
  4. TOVIAZ [Suspect]
     Active Substance: FESOTERODINE FUMARATE
     Indication: HYPERTONIC BLADDER
     Dosage: 8 MG, 1X/DAY
  5. LOSARTAN. [Concomitant]
     Active Substance: LOSARTAN
     Dosage: 100 MG, 1X/DAY  (TAKE 1 TABLET BY ORAL ROUTE EVERY DAY)
     Route: 048
     Dates: start: 20200622
  6. NITROSTAT [Concomitant]
     Active Substance: NITROGLYCERIN
     Indication: CHEST PAIN
     Dosage: 0.4 MG (PLACE TABLET BY SUBLINGUAL ROUTE EVERY 5 MINUTES A NEEDED  FOR CHEST PAIN)
     Route: 060
     Dates: start: 20200929
  7. TOVIAZ [Suspect]
     Active Substance: FESOTERODINE FUMARATE
     Dosage: 8 MG, 1X/DAY
     Route: 048
  8. TYNELOL [Concomitant]
     Active Substance: ACETAMINOPHEN
     Indication: ARTHRITIS
     Dosage: 1300 MG, 3X/DAY (TAKE 2 TAB BY ORAL ROUTE EVERY 8 HOURS AS NEEDED SWALLOWING WHOLE WITH WATER)
     Route: 048
  9. VITAMIN D3 [Concomitant]
     Active Substance: CHOLECALCIFEROL
     Dosage: 2000 IU, DAILY (TAKE 1 TABLET BY ORAL ROUTE DAILY)
     Route: 048
     Dates: start: 20200923
  10. AZO [Concomitant]
     Active Substance: PHENAZOPYRIDINE HYDROCHLORIDE
     Indication: URINARY TRACT INFECTION
     Dosage: 162 MG?162.5 MG TABLET
  11. METFORMIN ER [Concomitant]
     Active Substance: METFORMIN HYDROCHLORIDE
     Dosage: 500 MG, 2X/DAY (TAKE 1 TABLET BY ORAL ROUTE 2 TIMES DAILY WITH FOOD)
     Route: 048
     Dates: start: 20200302
  12. VOLTAREN [Concomitant]
     Active Substance: DICLOFENAC SODIUM
     Dosage: 2 G, 4X/DAY (APPLY(2G) BY TOPICAL ROUTE 4 TIMES EVERY DAY TO THE AFFECTED AREAS AS NEEDED)
     Route: 061
     Dates: start: 20200929
  13. ASPIRIN 81 [Concomitant]
     Active Substance: ASPIRIN
     Dosage: 81 MG, 1X/DAY (81 MG CHEWABLE TABLET)
     Route: 048
  14. ATORVASTATIN [Concomitant]
     Active Substance: ATORVASTATIN
     Dosage: 40 MG 1 TABLET BY ORAL ROUTE EVERYDAY WITH EVENING MEAL)
     Route: 048
     Dates: start: 20200122
  15. ISOSORBIDE MONONITRATE. [Concomitant]
     Active Substance: ISOSORBIDE MONONITRATE
     Dosage: 30 MG, DAILY (TAKE 1 TABLET BY ORAL ROUTE EVERY DAY IN THE MORNING)
     Route: 048
     Dates: start: 20200619
  16. CITALOPRAM [Concomitant]
     Active Substance: CITALOPRAM HYDROBROMIDE
     Dosage: 20 MG, 1X/ 1 TABLET BY ORAL ROUTE EVERY DAY)
     Route: 048
     Dates: start: 20200819
  17. METOPROLOL TARTRATE. [Concomitant]
     Active Substance: METOPROLOL TARTRATE
     Dosage: 25 MG, 2X/DAY (TAKE 1 TAB;ET BY ORAL ROUTE 2 TIMES EVERY DAY)
     Route: 048

REACTIONS (24)
  - Pruritus [Unknown]
  - Fall [Recovered/Resolved]
  - Cerebrovascular accident [Unknown]
  - Speech disorder [Not Recovered/Not Resolved]
  - Clumsiness [Unknown]
  - Accident [Unknown]
  - Spinal deformity [Unknown]
  - Feeling abnormal [Unknown]
  - Dizziness [Recovered/Resolved with Sequelae]
  - Dementia Alzheimer^s type [Unknown]
  - Therapeutic product effect incomplete [Unknown]
  - Bradyphrenia [Not Recovered/Not Resolved]
  - Influenza [Unknown]
  - Illness [Unknown]
  - Dehydration [Unknown]
  - Brain injury [Unknown]
  - Gait disturbance [Unknown]
  - Head discomfort [Unknown]
  - Head injury [Recovered/Resolved with Sequelae]
  - Dysphemia [Recovered/Resolved with Sequelae]
  - Memory impairment [Not Recovered/Not Resolved]
  - Neoplasm malignant [Recovered/Resolved]
  - Cerebral thrombosis [Unknown]
  - Thrombosis [Unknown]

NARRATIVE: CASE EVENT DATE: 20201216
